FAERS Safety Report 6774200-X (Version None)
Quarter: 2010Q2

REPORT INFORMATION
  Report Type: 
  Country: None (occurrence: None)
  Receive Date: 20100617
  Receipt Date: 20100609
  Transmission Date: 20101027
  Serious: Yes (Death)
  Sender: FDA-Public Use
  Company Number: US-JNJFOC-20100604457

PATIENT
  Sex: Female

DRUGS (6)
  1. REOPRO [Suspect]
     Indication: SURGERY
     Dosage: 10 MG/5 ML
     Route: 042
  2. SODIUM CHLORIDE [Concomitant]
     Indication: DRUG USE FOR UNKNOWN INDICATION
  3. DEXTROSE [Concomitant]
     Indication: DRUG USE FOR UNKNOWN INDICATION
  4. NOREPINEPHRINE [Concomitant]
     Indication: DRUG USE FOR UNKNOWN INDICATION
  5. PHENYLEPHRINE [Concomitant]
     Indication: DRUG USE FOR UNKNOWN INDICATION
  6. HUMULIN R [Concomitant]
     Indication: DRUG USE FOR UNKNOWN INDICATION

REACTIONS (1)
  - DEATH [None]
